FAERS Safety Report 19211509 (Version 1)
Quarter: 2021Q2

REPORT INFORMATION
  Report Type: Spontaneous
  Country: US (occurrence: US)
  Receive Date: 20210504
  Receipt Date: 20210504
  Transmission Date: 20210717
  Serious: No
  Sender: FDA-Public Use
  Company Number: US-ADAREPHARM-2021-US-000022

PATIENT
  Age: 15 Year
  Sex: Male

DRUGS (1)
  1. DEXMETHYLPHENIDATE HCL [Suspect]
     Active Substance: DEXMETHYLPHENIDATE HYDROCHLORIDE
     Indication: ATTENTION DEFICIT HYPERACTIVITY DISORDER
     Dosage: 30MG EVERY MORNING AFTER BREAKFAST
     Route: 048
     Dates: start: 20210327, end: 20210329

REACTIONS (5)
  - Disturbance in attention [Recovered/Resolved]
  - Drug ineffective [Recovered/Resolved]
  - Fatigue [Recovered/Resolved]
  - Tachyphrenia [Recovered/Resolved]
  - Attention deficit hyperactivity disorder [Recovered/Resolved]

NARRATIVE: CASE EVENT DATE: 20210327
